FAERS Safety Report 21609497 (Version 2)
Quarter: 2022Q4

REPORT INFORMATION
  Report Type: Spontaneous
  Country: DK (occurrence: DK)
  Receive Date: 20221117
  Receipt Date: 20221209
  Transmission Date: 20230113
  Serious: Yes (Other)
  Sender: FDA-Public Use
  Company Number: DK-TEVA-2022-DK-2826316

PATIENT
  Age: 1 Year
  Sex: Male

DRUGS (8)
  1. PREDNISOLONE [Suspect]
     Active Substance: PREDNISOLONE
     Indication: Idiopathic interstitial pneumonia
     Dosage: 10 MILLIGRAM DAILY;
     Route: 048
  2. PREDNISOLONE [Suspect]
     Active Substance: PREDNISOLONE
     Indication: Pemphigoid
     Dosage: 2 MG/KG DAILY;
     Route: 065
  3. AZATHIOPRINE [Suspect]
     Active Substance: AZATHIOPRINE
     Indication: Pemphigoid
     Route: 065
  4. MYCOPHENOLATE MOFETIL [Suspect]
     Active Substance: MYCOPHENOLATE MOFETIL
     Indication: Pemphigoid
     Route: 065
  5. HUMAN IMMUNOGLOBULIN G [Suspect]
     Active Substance: HUMAN IMMUNOGLOBULIN G
     Indication: Pemphigoid
     Route: 042
  6. DAPSONE [Suspect]
     Active Substance: DAPSONE
     Indication: Pemphigoid
     Route: 065
  7. AZITHROMYCIN [Concomitant]
     Active Substance: AZITHROMYCIN
     Indication: Antibiotic prophylaxis
     Route: 065
  8. METHYLPREDNISOLONE [Concomitant]
     Active Substance: METHYLPREDNISOLONE
     Indication: Idiopathic interstitial pneumonia
     Dosage: 25 MG/KG DAILY; 3 DAYS PER MONTH FOR 6 MONTH
     Route: 042

REACTIONS (4)
  - Mental disorder [Unknown]
  - Dyspnoea [Unknown]
  - Gastrointestinal disorder [Unknown]
  - Drug ineffective [Unknown]
